FAERS Safety Report 22008102 (Version 1)
Quarter: 2023Q1

REPORT INFORMATION
  Report Type: Spontaneous
  Country: CA (occurrence: CA)
  Receive Date: 20230218
  Receipt Date: 20230218
  Transmission Date: 20230418
  Serious: Yes (Other)
  Sender: FDA-Public Use
  Company Number: CA-AMGEN-CANSP2023025876

PATIENT
  Age: 71 Year
  Sex: Male

DRUGS (2)
  1. PROLIA [Suspect]
     Active Substance: DENOSUMAB
     Indication: Product used for unknown indication
     Dosage: UNK
     Route: 065
  2. LASIX [Concomitant]
     Active Substance: FUROSEMIDE

REACTIONS (5)
  - Myocardial infarction [Unknown]
  - Cardiac ablation [Unknown]
  - Tachycardia [Unknown]
  - Visual impairment [Unknown]
  - Hypertension [Unknown]

NARRATIVE: CASE EVENT DATE: 20220801
